FAERS Safety Report 6021642-6 (Version None)
Quarter: 2008Q4

REPORT INFORMATION
  Report Type: 
  Country: None (occurrence: None)
  Receive Date: 20081229
  Receipt Date: 20081212
  Transmission Date: 20090506
  Serious: Yes (Death)
  Sender: FDA-Public Use
  Company Number: CA-PFIZER INC-2008155250

PATIENT

DRUGS (8)
  1. REVATIO [Suspect]
     Indication: PULMONARY HYPERTENSION
     Dosage: 12.5 MG, Q6HRS
     Dates: start: 20040501, end: 20081206
  2. FUROSEMIDE [Concomitant]
     Dosage: UNK
     Route: 042
     Dates: start: 20081125
  3. RANITIDINE [Concomitant]
     Route: 042
  4. HEPARIN SODIUM [Concomitant]
     Route: 042
  5. CEFOTAXIME [Concomitant]
     Route: 042
  6. POTASSIUM CHLORIDE [Concomitant]
  7. BOSENTAN [Concomitant]
  8. OMEPRAZOLE [Concomitant]

REACTIONS (1)
  - INTRACARDIAC THROMBUS [None]
